FAERS Safety Report 16099605 (Version 1)
Quarter: 2019Q2

REPORT INFORMATION
  Report Type: Spontaneous
  Country: US (occurrence: US)
  Receive Date: 20190320
  Receipt Date: 20190320
  Transmission Date: 20190711
  Serious: Yes (Other)
  Sender: FDA-Public Use
  Company Number: None

PATIENT
  Sex: Male

DRUGS (7)
  1. OXCARBAZEPINE 300MG TABLETS [Concomitant]
     Dates: start: 20090915
  2. CEREFOLIN TABLETS [Concomitant]
     Dates: start: 20090915
  3. PHENYTOIN EX CAPSULES 100MG [Concomitant]
     Dates: start: 20090915
  4. AVEED [Suspect]
     Active Substance: TESTOSTERONE UNDECANOATE
     Indication: TESTICULAR FAILURE
     Dosage: ?          OTHER FREQUENCY:EVERY 10 WEEKS;?
     Route: 030
  5. CYMBALTA [Concomitant]
     Active Substance: DULOXETINE HYDROCHLORIDE
     Dates: start: 20090915
  6. LIPITOR 40MG TABLETS [Concomitant]
     Dates: start: 20090915
  7. CLONAZEPAM 2MG TABLETS [Concomitant]
     Dates: start: 20090915

REACTIONS (2)
  - Head injury [None]
  - Memory impairment [None]
